FAERS Safety Report 23786306 (Version 2)
Quarter: 2024Q2

REPORT INFORMATION
  Report Type: Spontaneous
  Country: CA (occurrence: CA)
  Receive Date: 20240426
  Receipt Date: 20240523
  Transmission Date: 20240716
  Serious: Yes (Hospitalization)
  Sender: FDA-Public Use
  Company Number: CA-CELLTRION INC.-2024CA009518

PATIENT

DRUGS (3)
  1. INFLECTRA [Suspect]
     Active Substance: INFLIXIMAB-DYYB
     Indication: Crohn^s disease
     Dosage: 700 MG, EVERY 4 WEEKS
     Route: 042
     Dates: start: 20240318
  2. INFLECTRA [Suspect]
     Active Substance: INFLIXIMAB-DYYB
     Dosage: 700 MG, EVERY 4 WEEKS
     Route: 042
     Dates: start: 20240417
  3. INFLECTRA [Suspect]
     Active Substance: INFLIXIMAB-DYYB
     Dosage: 700 MG, AFTER 3 WEEKS AND 5 DAYS (PRESCIBED EVERY 4 WEEKS)
     Route: 042
     Dates: start: 20240513

REACTIONS (2)
  - Condition aggravated [Recovered/Resolved]
  - Off label use [Unknown]

NARRATIVE: CASE EVENT DATE: 20240417
